FAERS Safety Report 20121334 (Version 1)
Quarter: 2021Q4

REPORT INFORMATION
  Report Type: Report from Study
  Country: NL (occurrence: NL)
  Receive Date: 20211127
  Receipt Date: 20211127
  Transmission Date: 20220303
  Serious: Yes (Other)
  Sender: FDA-Public Use
  Company Number: NL-AMGEN-NLDSL2021184123

PATIENT
  Age: 61 Year
  Sex: Female

DRUGS (6)
  1. XGEVA [Suspect]
     Active Substance: DENOSUMAB
     Indication: Prophylaxis
     Dosage: 120 MILLIGRAM (1.7ML), Q4WK
     Route: 058
     Dates: start: 20200316
  2. ANASTROZOLE [Concomitant]
     Active Substance: ANASTROZOLE
     Dosage: 1 MILLIGRAM, QD
  3. CALCIUM CARBONATE\CHOLECALCIFEROL [Concomitant]
     Active Substance: CALCIUM CARBONATE\CHOLECALCIFEROL
     Dosage: 1.25G/880IE (500MG CA), QD
  4. EXEMESTANE [Concomitant]
     Active Substance: EXEMESTANE
     Dosage: 25 MILLIGRAM, QD
  5. IBANDRONIC ACID [Concomitant]
     Active Substance: IBANDRONIC ACID
     Dosage: 150 MILLIGRAM, QWK
  6. RIVAROXABAN [Concomitant]
     Active Substance: RIVAROXABAN
     Dosage: 20 MILLIGRAM, QD

REACTIONS (1)
  - Jaw operation [Unknown]
